FAERS Safety Report 7996033-9 (Version None)
Quarter: 2011Q4

REPORT INFORMATION
  Report Type: 
  Country: None (occurrence: None)
  Receive Date: 20111220
  Receipt Date: 20111207
  Transmission Date: 20120403
  Serious: Yes (Hospitalization, Disabling, Other)
  Sender: FDA-Public Use
  Company Number: PHHY2010JP61640

PATIENT
  Sex: Male

DRUGS (35)
  1. CALCIUM POLYSTYRENE SULFONATE [Suspect]
     Dosage: 3 DF, UNK
     Route: 048
  2. SLOW-K [Concomitant]
     Dosage: 1800 MG, UNK
     Route: 048
     Dates: start: 20100909, end: 20100930
  3. AMLODIPINE [Concomitant]
     Dosage: 5 MG, UNK
     Route: 048
     Dates: start: 20110223
  4. AFINITOR [Suspect]
     Dosage: 5 MG, DAILY
     Route: 048
     Dates: start: 20110414, end: 20110725
  5. IRBESARTAN [Concomitant]
     Dosage: 100 MG, UNK
     Route: 048
     Dates: start: 20090610
  6. RASILEZ (ALISKIREN) [Concomitant]
     Dosage: 150 MG, UNK
     Dates: start: 20100602
  7. NOVORAPID [Concomitant]
     Dosage: 12 DF, UNK
     Route: 058
  8. NOVORAPID [Concomitant]
     Dosage: 50 DF, UNK
     Route: 058
  9. NOVORAPID [Concomitant]
     Dosage: 48 DF, UNK
     Route: 058
  10. NOVORAPID [Concomitant]
     Dosage: 38 DF, UNK
     Route: 058
  11. MUCOSOLVAN [Concomitant]
     Dosage: 45 MG, UNK
     Route: 048
     Dates: start: 20101221
  12. TORSEMIDE [Concomitant]
     Dosage: 8 MG, UNK
     Dates: start: 20091209
  13. ALLOPURINOL [Concomitant]
     Dosage: 200 MG, UNK
     Dates: start: 20091214
  14. ALDACTONE [Concomitant]
     Dosage: 25 MG, UNK
     Route: 048
     Dates: start: 20101006
  15. OMEPRAZOLE [Concomitant]
     Dosage: 20 MG, UNK
     Route: 048
     Dates: start: 20100913
  16. NOVORAPID [Concomitant]
     Dosage: 32 DF, UNK
     Route: 058
  17. SULFAMETHOXAZOLE AND TRIMETHOPRIM [Concomitant]
     Dosage: 1 DF, UNK
     Route: 048
     Dates: start: 20100917, end: 20110530
  18. ALENDRONATE SODIUM [Concomitant]
     Dosage: 35 MG, UNK
     Route: 048
     Dates: start: 20100929
  19. MAGMITT [Concomitant]
     Dosage: 750 MG, UNK
     Dates: start: 20100929
  20. AFINITOR [Suspect]
     Dosage: 5 MG, DAILY
     Route: 048
     Dates: start: 20110830
  21. ATELEC [Concomitant]
     Dosage: 20 MG, UNK
     Route: 048
     Dates: start: 20090610
  22. AFINITOR [Suspect]
     Dosage: 5 MG, DAILY
     Route: 048
     Dates: start: 20100902, end: 20100908
  23. NOVORAPID [Concomitant]
     Dosage: 9 DF, UNK
     Route: 058
     Dates: start: 20100910
  24. AMLODIPINE [Concomitant]
     Dosage: 5 MG, UNK
     Route: 048
  25. LASIX [Concomitant]
     Dosage: 40 MG, UNK
     Route: 048
     Dates: start: 20101006
  26. NOVORAPID [Concomitant]
     Dosage: 30 DF, UNK
     Route: 058
  27. NOVORAPID [Concomitant]
     Dosage: 48 DF, UNK
     Route: 058
  28. AFINITOR [Suspect]
     Indication: METASTATIC RENAL CELL CARCINOMA
     Dosage: 10 MG, DAILY
     Route: 048
     Dates: start: 20100805, end: 20100901
  29. DEPAKENE [Concomitant]
     Dosage: 400 MG, UNK
     Dates: start: 20070521
  30. NOVORAPID [Concomitant]
     Dosage: 46 DF, UNK
     Route: 058
  31. AMLODIPINE [Concomitant]
     Dosage: 10 MG, UNK
     Route: 048
  32. AFINITOR [Suspect]
     Dosage: 5 MG, DAILY
     Route: 048
     Dates: start: 20110106, end: 20110309
  33. CALCIUM POLYSTYRENE SULFONATE [Suspect]
     Dosage: 3 DF, UNK
     Route: 048
     Dates: start: 20091014
  34. DOXAZOSIN MESYLATE [Concomitant]
     Dosage: 4 MG, UNK
     Route: 048
     Dates: start: 20091014
  35. CARVEDILOL [Concomitant]
     Dosage: 20 MG, UNK
     Dates: start: 20100106

REACTIONS (11)
  - INTERSTITIAL LUNG DISEASE [None]
  - SURFACTANT PROTEIN INCREASED [None]
  - METASTASES TO LIVER [None]
  - RESPIRATORY DISTRESS [None]
  - HYPOKALAEMIA [None]
  - RENAL FAILURE CHRONIC [None]
  - ANAEMIA [None]
  - COUGH [None]
  - BLOOD CREATININE INCREASED [None]
  - CELL MARKER INCREASED [None]
  - PYREXIA [None]
